FAERS Safety Report 23612538 (Version 1)
Quarter: 2024Q1

REPORT INFORMATION
  Report Type: Spontaneous
  Country: US (occurrence: US)
  Receive Date: 20240308
  Receipt Date: 20240308
  Transmission Date: 20240410
  Serious: No
  Sender: FDA-Public Use
  Company Number: US-PFIZER INC-202400058552

PATIENT
  Age: 81 Year
  Sex: Female
  Weight: 53.98 kg

DRUGS (1)
  1. FLUCONAZOLE [Suspect]
     Active Substance: FLUCONAZOLE
     Indication: Coccidioidomycosis
     Dosage: 200 MG, 2 OF THEM, TWICE A DAY
     Route: 048
     Dates: start: 20231103, end: 202402

REACTIONS (4)
  - Alopecia [Not Recovered/Not Resolved]
  - Lip exfoliation [Recovered/Resolved]
  - Lip haemorrhage [Recovered/Resolved]
  - Off label use [Unknown]

NARRATIVE: CASE EVENT DATE: 20231103
